FAERS Safety Report 5355170-8 (Version None)
Quarter: 2007Q2

REPORT INFORMATION
  Report Type: 
  Country: None (occurrence: None)
  Receive Date: 20070611
  Receipt Date: 20070531
  Transmission Date: 20071010
  Serious: Yes (Other)
  Sender: FDA-Public Use
  Company Number: 2007AP000584

PATIENT
  Age: 41 Year
  Sex: Male

DRUGS (4)
  1. FLUOXETINE HCL [Suspect]
     Indication: INSOMNIA
     Dosage: 20 MG; QD UNKNOWN
  2. FLUOXETINE HCL [Suspect]
     Indication: MAJOR DEPRESSION
     Dosage: 20 MG; QD UNKNOWN
  3. MIRTAZAPINE [Suspect]
     Indication: INSOMNIA
     Dosage: 15 MG; QD UNKNOWN
  4. MIRTAZAPINE [Suspect]
     Indication: MAJOR DEPRESSION
     Dosage: 15 MG; QD UNKNOWN

REACTIONS (3)
  - DRUG INTERACTION [None]
  - PERIODIC LIMB MOVEMENT DISORDER [None]
  - RESTLESS LEGS SYNDROME [None]
